FAERS Safety Report 4844272-8 (Version None)
Quarter: 2005Q4

REPORT INFORMATION
  Report Type: 
  Country: None (occurrence: None)
  Receive Date: 20051202
  Receipt Date: 20051114
  Transmission Date: 20060501
  Serious: Yes (Hospitalization, Other)
  Sender: FDA-Public Use
  Company Number: JP-MERCK-0511USA02270

PATIENT
  Age: 44 Year
  Sex: Female

DRUGS (2)
  1. PRINIVIL [Suspect]
     Indication: HYPERTENSION
     Route: 048
     Dates: start: 20040101, end: 20041005
  2. VALSARTAN [Suspect]
     Indication: HYPERTENSION
     Route: 048
     Dates: start: 20040101, end: 20041005

REACTIONS (11)
  - ABDOMINAL PAIN [None]
  - ANAEMIA [None]
  - ANGIONEUROTIC OEDEMA [None]
  - DEHYDRATION [None]
  - DRUG INTERACTION [None]
  - LEUKOCYTOSIS [None]
  - PANCREATIC DISORDER [None]
  - PERITONITIS [None]
  - PYREXIA [None]
  - SMALL BOWEL ANGIOEDEMA [None]
  - SMALL INTESTINE CARCINOMA [None]
